FAERS Safety Report 9463293 (Version 2)
Quarter: 2013Q3

REPORT INFORMATION
  Report Type: Spontaneous
  Country: CA (occurrence: GB)
  Receive Date: 20130819
  Receipt Date: 20130913
  Transmission Date: 20140515
  Serious: Yes (Other)
  Sender: FDA-Public Use
  Company Number: CA-MERCK-1308GBR006434

PATIENT
  Sex: Female

DRUGS (11)
  1. ISENTRESS [Suspect]
     Indication: HIV INFECTION
     Dosage: 400 MG, BID
     Route: 048
  2. APTIVUS [Suspect]
     Indication: HIV INFECTION
     Dosage: 500 MG, BID
  3. INTELENCE [Suspect]
     Indication: PRODUCT USED FOR UNKNOWN INDICATION
     Dosage: 1000 MG, QD
     Route: 048
  4. INTELENCE [Suspect]
     Dosage: 200 MG, BID
     Route: 048
  5. INTELENCE [Suspect]
     Dosage: 500 MG, BID
     Route: 048
  6. NORVIR [Suspect]
     Indication: HIV INFECTION
     Dosage: 200 MG, BID
  7. PREZISTA [Suspect]
     Indication: HIV INFECTION
     Dosage: 600 MG, BID
     Route: 048
  8. TRUVADA [Suspect]
     Indication: HIV INFECTION
  9. NOVORAPID [Concomitant]
     Indication: GESTATIONAL DIABETES
  10. PREDNISOLONE [Concomitant]
     Indication: PRODUCT USED FOR UNKNOWN INDICATION
     Dosage: 25 MG, UNK
  11. ZIDOVUDINE [Concomitant]
     Indication: PRODUCT USED FOR UNKNOWN INDICATION

REACTIONS (2)
  - Premature labour [Recovered/Resolved]
  - Exposure during pregnancy [Recovered/Resolved]
